FAERS Safety Report 8807994 (Version 1)
Quarter: 2012Q4

REPORT INFORMATION
  Report Type: 
  Country: US (occurrence: US)
  Receive Date: 20120925
  Receipt Date: 20120925
  Transmission Date: 20130627
  Serious: Yes (Death, Other)
  Sender: FDA-Public Use
  Company Number: US-ROCHE-1124450

PATIENT
  Sex: Female

DRUGS (7)
  1. AVASTIN [Suspect]
     Indication: BREAST CANCER FEMALE
     Route: 065
  2. AVASTIN [Suspect]
     Indication: BONE NEOPLASM MALIGNANT
  3. AVASTIN [Suspect]
     Indication: BONE NEOPLASM MALIGNANT
  4. ADRIAMYCIN [Concomitant]
  5. CYTOXAN [Concomitant]
  6. CARBOPLATIN [Concomitant]
  7. GEMZAR [Concomitant]

REACTIONS (2)
  - Death [Fatal]
  - Metastases to bone [Unknown]
